FAERS Safety Report 9004267 (Version 4)
Quarter: 2013Q3

REPORT INFORMATION
  Report Type: Report from Study
  Country: FR (occurrence: FR)
  Receive Date: 20130108
  Receipt Date: 20130717
  Transmission Date: 20140515
  Serious: Yes (Hospitalization)
  Sender: FDA-Public Use
  Company Number: FR-ROCHE-1172576

PATIENT
  Age: 44 Year
  Sex: Female

DRUGS (25)
  1. PERTUZUMAB [Suspect]
     Indication: BREAST CANCER
     Dosage: MOST RECENT DOSE PRIOR TO EVENT :27/NOV/2012
     Route: 042
     Dates: start: 20120724
  2. TRASTUZUMAB [Suspect]
     Indication: BREAST CANCER
     Dosage: MOST RECENT DOSE PRIOR TO EVENT :27/NOV/2012
     Route: 042
     Dates: start: 20120724
  3. SPIRONOLACTONE [Concomitant]
     Route: 065
     Dates: start: 20121203
  4. FUROSEMIDE [Concomitant]
     Route: 065
     Dates: start: 20120905
  5. OXYCONTIN [Concomitant]
     Route: 065
     Dates: start: 20120613
  6. DAFALGAN [Concomitant]
     Route: 065
     Dates: start: 20120613
  7. FORLAX (FRANCE) [Concomitant]
     Route: 065
     Dates: start: 20120613
  8. FORLAX (FRANCE) [Concomitant]
     Dosage: PRN
     Route: 065
     Dates: start: 20121016
  9. KERLONE [Concomitant]
     Route: 065
  10. KESTINLYO [Concomitant]
     Dosage: 1 TAB
     Route: 065
  11. AUGMENTIN [Concomitant]
     Route: 065
     Dates: start: 20120801, end: 20120806
  12. AUGMENTIN [Concomitant]
     Route: 065
     Dates: start: 20121019, end: 20121021
  13. CIFLOX [Concomitant]
     Route: 065
     Dates: start: 20120801, end: 20120806
  14. CIFLOX [Concomitant]
     Route: 065
     Dates: start: 20121019, end: 20121025
  15. NEULASTA [Concomitant]
     Route: 065
     Dates: start: 20120814
  16. TRIFLUCAN [Concomitant]
     Route: 065
     Dates: start: 20120813
  17. MEDROL [Concomitant]
     Route: 065
     Dates: start: 20120724
  18. VOGALENE [Concomitant]
     Dosage: PRN
     Route: 065
     Dates: start: 20120725
  19. EMEND [Concomitant]
     Dosage: PRN
     Route: 065
     Dates: start: 20120813
  20. LASILIX [Concomitant]
     Route: 065
     Dates: start: 201209, end: 20121015
  21. LASILIX [Concomitant]
     Route: 065
     Dates: start: 20121016, end: 20121106
  22. LASILIX [Concomitant]
     Route: 065
     Dates: start: 20121106
  23. LASILIX [Concomitant]
     Route: 065
     Dates: start: 20121208
  24. DEXERYL (FRANCE) [Concomitant]
     Route: 065
     Dates: start: 201208
  25. MOPRAL (FRANCE) [Concomitant]
     Route: 065
     Dates: start: 201209

REACTIONS (1)
  - Pleural effusion [Recovered/Resolved]
